FAERS Safety Report 6582198-2 (Version None)
Quarter: 2010Q1

REPORT INFORMATION
  Report Type: 
  Country: None (occurrence: None)
  Receive Date: 20100216
  Receipt Date: 20100204
  Transmission Date: 20100710
  Serious: Yes (Hospitalization)
  Sender: FDA-Public Use
  Company Number: JP-JNJFOC-20100203424

PATIENT
  Age: 56 Year
  Sex: Male

DRUGS (2)
  1. RISPERDAL [Suspect]
     Indication: DRUG USE FOR UNKNOWN INDICATION
     Route: 048
  2. RISPERDAL [Suspect]
     Route: 048

REACTIONS (6)
  - ABNORMAL BEHAVIOUR [None]
  - APATHY [None]
  - DECREASED APPETITE [None]
  - DYSPHAGIA [None]
  - HYPERPROLACTINAEMIA [None]
  - PNEUMONIA ASPIRATION [None]
